FAERS Safety Report 20211702 (Version 1)
Quarter: 2021Q4

REPORT INFORMATION
  Report Type: Spontaneous
  Country: US (occurrence: None)
  Receive Date: 20211221
  Receipt Date: 20211221
  Transmission Date: 20220303
  Serious: Yes (Hospitalization)
  Sender: FDA-Public Use
  Company Number: None

PATIENT
  Sex: Female
  Weight: 105.5 kg

DRUGS (3)
  1. CYTARABINE [Suspect]
     Active Substance: CYTARABINE
  2. METHOTREXATE [Concomitant]
     Active Substance: METHOTREXATE
  3. DASATINIB (BMS-354825, SPRYCEL) [Concomitant]

REACTIONS (10)
  - Headache [None]
  - Heart rate increased [None]
  - White blood cell count decreased [None]
  - Haemoglobin decreased [None]
  - Blood sodium decreased [None]
  - Blood glucose increased [None]
  - COVID-19 [None]
  - Febrile neutropenia [None]
  - Hypotension [None]
  - Colitis [None]

NARRATIVE: CASE EVENT DATE: 20211211
